FAERS Safety Report 8798957 (Version 2)
Quarter: 2012Q4

REPORT INFORMATION
  Report Type: 
  Country: DE (occurrence: DE)
  Receive Date: 20120920
  Receipt Date: 20121221
  Transmission Date: 20130627
  Serious: Yes (Other)
  Sender: FDA-Public Use
  Company Number: DE-ELI_LILLY_AND_COMPANY-DE201209003797

PATIENT
  Age: 59 Year
  Sex: Female

DRUGS (2)
  1. ALIMTA [Suspect]
     Indication: NON-SMALL CELL LUNG CANCER
     Dosage: 500 mg/m2, UNK
     Route: 042
  2. CISPLATINE [Concomitant]

REACTIONS (3)
  - Adenocarcinoma [Unknown]
  - Pulmonary embolism [Unknown]
  - Fatigue [Recovered/Resolved]
